FAERS Safety Report 5598449-7 (Version None)
Quarter: 2007Q4

REPORT INFORMATION
  Report Type: 
  Country: None (occurrence: None)
  Receive Date: 20071226
  Receipt Date: 20070906
  Transmission Date: 20080405
  Serious: No
  Sender: FDA-Public Use
  Company Number: 2007PV033408

PATIENT
  Age: 64 Year
  Sex: Female

DRUGS (7)
  1. SYMLIN [Suspect]
     Indication: TYPE 2 DIABETES MELLITUS
     Dosage: 150,90 MCG, TID, SC
     Route: 058
     Dates: start: 20070828, end: 20070902
  2. SYMLIN [Suspect]
     Indication: TYPE 2 DIABETES MELLITUS
     Dosage: 150,90 MCG, TID, SC
     Route: 058
     Dates: start: 20070902
  3. NOVOLOG [Concomitant]
  4. LANTUS [Concomitant]
  5. BYETTA [Concomitant]
  6. EFFEXOR [Concomitant]
  7. LANTUS [Concomitant]

REACTIONS (2)
  - BLOOD GLUCOSE INCREASED [None]
  - DRUG INEFFECTIVE [None]
